FAERS Safety Report 19542135 (Version 1)
Quarter: 2021Q3

REPORT INFORMATION
  Report Type: Spontaneous
  Country: CN (occurrence: CN)
  Receive Date: 20210713
  Receipt Date: 20210713
  Transmission Date: 20211014
  Serious: Yes (Hospitalization)
  Sender: FDA-Public Use
  Company Number: CN-BAXTER-2021BAX020015

PATIENT
  Age: 54 Year
  Sex: Female
  Weight: 60 kg

DRUGS (4)
  1. 0.9% SODIUM CHLORIDE INJECTION [Suspect]
     Active Substance: SODIUM CHLORIDE
     Indication: MEDICATION DILUTION
     Dosage: CYCLOPHOSPHAMIDE FOR INJECTION 900 MG DILUTED WITH 0.9% SODIUM CHLORIDE INJECTION 100 ML D1 REGIMEN.
     Route: 041
     Dates: start: 20210613, end: 20210613
  2. ENDOXAN [Suspect]
     Active Substance: CYCLOPHOSPHAMIDE
     Indication: BREAST CANCER FEMALE
     Dosage: CYCLOPHOSPHAMIDE 900 MG DILUTED WITH 0.9% SODIUM CHLORIDE INJECTION 100 ML D1 REGIMEN.
     Route: 041
     Dates: start: 20210613, end: 20210613
  3. PIRARUBICIN HYDROCHLORIDE [Suspect]
     Active Substance: PIRARUBICIN HYDROCHLORIDE
     Indication: BREAST CANCER FEMALE
     Dosage: PIRARUBICIN HYDROCHLORIDE 90 MG DILUTED WITH 5% GLUCOSE INJECTION 100 ML D1 REGIMEN.
     Route: 041
     Dates: start: 20210613, end: 20210613
  4. 5% GLUCOSE  INJECTION [Suspect]
     Active Substance: DEXTROSE
     Indication: MEDICATION DILUTION
     Dosage: PIRARUBICIN HYDROCHLORIDE 90 MG DILUTED WITH 5% GLUCOSE INJECTION 100 ML D1 REGIMEN.
     Route: 041
     Dates: start: 20210613, end: 20210613

REACTIONS (1)
  - Myelosuppression [Recovered/Resolved]

NARRATIVE: CASE EVENT DATE: 20210626
